FAERS Safety Report 12659354 (Version 1)
Quarter: 2016Q3

REPORT INFORMATION
  Report Type: Spontaneous
  Country: US (occurrence: US)
  Receive Date: 20160817
  Receipt Date: 20160817
  Transmission Date: 20161109
  Serious: No
  Sender: FDA-Public Use
  Company Number: US-GLAXOSMITHKLINE-US2016111496

PATIENT
  Sex: Female

DRUGS (1)
  1. TANZEUM [Suspect]
     Active Substance: ALBIGLUTIDE
     Dosage: 30 MG, WE
     Route: 058

REACTIONS (3)
  - Device use error [Unknown]
  - Device leakage [Unknown]
  - Product preparation error [Unknown]
